FAERS Safety Report 10705955 (Version 1)
Quarter: 2015Q1

REPORT INFORMATION
  Report Type: Report from Study
  Country: CA (occurrence: CA)
  Receive Date: 20150113
  Receipt Date: 20150113
  Transmission Date: 20150721
  Serious: Yes (Other)
  Sender: FDA-Public Use
  Company Number: CA-AMGEN-CANSL2015000953

PATIENT
  Age: 55 Year
  Sex: Female

DRUGS (2)
  1. RESOTRAN [Concomitant]
     Active Substance: PRUCALOPRIDE SUCCINATE
     Indication: DYSPEPSIA
     Dosage: UNK
  2. PROLIA [Suspect]
     Active Substance: DENOSUMAB
     Indication: OSTEOPOROSIS POSTMENOPAUSAL
     Dosage: 60 MG, Q6MO
     Route: 058
     Dates: start: 20120620

REACTIONS (4)
  - Tooth disorder [Unknown]
  - Bone loss [Unknown]
  - Gingival disorder [Unknown]
  - Dental caries [Unknown]

NARRATIVE: CASE EVENT DATE: 2014
